FAERS Safety Report 14459379 (Version 1)
Quarter: 2018Q1

REPORT INFORMATION
  Report Type: Other
  Country: US (occurrence: US)
  Receive Date: 20180130
  Receipt Date: 20180130
  Transmission Date: 20180509
  Serious: No
  Sender: FDA-Public Use
  Company Number: US-ACORDA-ACO_136973_2017

PATIENT
  Age: 47 Year
  Sex: Female
  Weight: 66.03 kg

DRUGS (11)
  1. TYSABRI [Suspect]
     Active Substance: NATALIZUMAB
     Indication: PRODUCT USED FOR UNKNOWN INDICATION
     Dosage: 300MG/15 ML INFUSED 15 ML EVERY 4 WEEKS
     Route: 042
  2. OMEGA 3 [Concomitant]
     Active Substance: OMEGA-3 FATTY ACIDS
     Indication: PRODUCT USED FOR UNKNOWN INDICATION
     Dosage: 350-400 MG
     Route: 048
  3. VITAMIN D3 [Concomitant]
     Active Substance: CHOLECALCIFEROL
     Indication: PRODUCT USED FOR UNKNOWN INDICATION
     Dosage: 1 DF, QD
     Route: 048
  4. BETASERON [Suspect]
     Active Substance: INTERFERON BETA-1B
     Indication: PRODUCT USED FOR UNKNOWN INDICATION
     Dosage: UNK
     Route: 065
  5. PROVIGIL [Concomitant]
     Active Substance: MODAFINIL
     Indication: PRODUCT USED FOR UNKNOWN INDICATION
     Dosage: 200 MG, BID
     Route: 048
  6. AMPYRA [Suspect]
     Active Substance: DALFAMPRIDINE
     Indication: GAIT DISTURBANCE
     Dosage: 10 MG, BID
     Route: 048
     Dates: start: 20150413
  7. UNISOM SLEEPTABS [Concomitant]
     Active Substance: DOXYLAMINE SUCCINATE
     Indication: PRODUCT USED FOR UNKNOWN INDICATION
     Dosage: UNK
     Route: 065
  8. REBIF [Suspect]
     Active Substance: INTERFERON BETA-1A
     Indication: PRODUCT USED FOR UNKNOWN INDICATION
     Dosage: 44 ??G, 3X/WK
     Route: 058
  9. AMPYRA [Suspect]
     Active Substance: DALFAMPRIDINE
     Dosage: 10 MG, ONCE A DAY
     Route: 048
     Dates: end: 20170822
  10. VITAMIN D [Concomitant]
     Active Substance: CHOLECALCIFEROL
     Indication: PRODUCT USED FOR UNKNOWN INDICATION
     Dosage: 1 DF, QD
     Route: 048
  11. AMPYRA [Suspect]
     Active Substance: DALFAMPRIDINE
     Indication: MULTIPLE SCLEROSIS
     Dosage: 10 MG, BID
     Route: 048

REACTIONS (27)
  - Asthenia [Unknown]
  - Ataxia [Unknown]
  - Dyskinesia [Unknown]
  - Injection site reaction [Unknown]
  - Pyrexia [Recovered/Resolved]
  - Temperature intolerance [Unknown]
  - Condition aggravated [Unknown]
  - Balance disorder [Unknown]
  - Constipation [Unknown]
  - Urinary tract infection [Unknown]
  - Diarrhoea [Recovered/Resolved]
  - Cerebellar syndrome [Unknown]
  - Extensor plantar response [Unknown]
  - Anaemia [Unknown]
  - Fall [Recovered/Resolved]
  - Motor dysfunction [Unknown]
  - Gait disturbance [Unknown]
  - Dysstasia [Unknown]
  - Drug ineffective [Unknown]
  - Confusional state [Unknown]
  - Hypoaesthesia [Unknown]
  - Energy increased [Unknown]
  - Therapy cessation [Unknown]
  - Pain [Unknown]
  - Hyporeflexia [Unknown]
  - Loss of personal independence in daily activities [Unknown]
  - Dry mouth [Unknown]

NARRATIVE: CASE EVENT DATE: 2015
